FAERS Safety Report 9286214 (Version 1)
Quarter: 2013Q2

REPORT INFORMATION
  Report Type: Spontaneous
  Country: US (occurrence: US)
  Receive Date: 20130513
  Receipt Date: 20130513
  Transmission Date: 20140414
  Serious: Yes (Death)
  Sender: FDA-Public Use
  Company Number: US-GLAXOSMITHKLINE-A1023134A

PATIENT
  Age: 65 Year
  Sex: Female

DRUGS (8)
  1. VOTRIENT [Suspect]
     Indication: NEOPLASM MALIGNANT
     Dosage: 800MG PER DAY
     Route: 048
     Dates: start: 20060711, end: 20130413
  2. PREDNISONE [Concomitant]
  3. LEVOXYL [Concomitant]
  4. STOOL SOFTENER [Concomitant]
  5. VITAMIN D [Concomitant]
  6. CITRACAL [Concomitant]
  7. CENTRUM [Concomitant]
  8. LOSARTAN [Concomitant]

REACTIONS (1)
  - Death [Fatal]
